FAERS Safety Report 9332740 (Version 2)
Quarter: 2013Q2

REPORT INFORMATION
  Report Type: Spontaneous
  Country: US (occurrence: US)
  Receive Date: 20130606
  Receipt Date: 20130625
  Transmission Date: 20140414
  Serious: Yes (Other)
  Sender: FDA-Public Use
  Company Number: US-PFIZER INC-2013171229

PATIENT
  Age: 34 Year
  Sex: Female
  Weight: 74.83 kg

DRUGS (6)
  1. NEURONTIN [Suspect]
     Indication: FIBROMYALGIA
     Dosage: 800 MG, AS NEEDED
     Dates: start: 201210, end: 20130303
  2. NEURONTIN [Suspect]
     Indication: PAIN
  3. LYRICA [Suspect]
     Indication: FIBROMYALGIA
     Dosage: 100 MG, 2X/DAY
     Dates: start: 20130304
  4. LYRICA [Suspect]
     Dosage: 150 MG, 3X/DAY
  5. EFFEXOR XR [Suspect]
     Indication: FIBROMYALGIA
     Dosage: 75 MG, UNK
  6. EFFEXOR XR [Suspect]
     Indication: DEPRESSION

REACTIONS (5)
  - Off label use [Unknown]
  - Weight fluctuation [Unknown]
  - Increased appetite [Unknown]
  - Food craving [Unknown]
  - Drug intolerance [Unknown]
